FAERS Safety Report 4970512-0 (Version None)
Quarter: 2006Q2

REPORT INFORMATION
  Report Type: 
  Country: None (occurrence: None)
  Receive Date: 20060412
  Receipt Date: 20060407
  Transmission Date: 20061013
  Serious: Yes (Other)
  Sender: FDA-Public Use
  Company Number: PHRM2006FR01278

PATIENT
  Age: 48 Year
  Sex: Male

DRUGS (3)
  1. TRILEPTAL [Suspect]
     Dosage: 300 MG, BID
     Route: 048
     Dates: start: 20040101
  2. RADIOTHERAPY [Suspect]
  3. EPITOMAX [Suspect]
     Dosage: 100 MG, BID
     Dates: start: 20050101

REACTIONS (3)
  - JOINT ANKYLOSIS [None]
  - PERIARTHRITIS [None]
  - SHOULDER PAIN [None]
